FAERS Safety Report 25523472 (Version 1)
Quarter: 2025Q3

REPORT INFORMATION
  Report Type: Spontaneous
  Country: CN (occurrence: CN)
  Receive Date: 20250707
  Receipt Date: 20250707
  Transmission Date: 20251020
  Serious: Yes (Life-Threatening, Hospitalization, Other)
  Sender: Unknown Manufacturer
  Company Number: CN-862174955-ML2025-03206

PATIENT
  Age: 54 Year
  Sex: Male

DRUGS (3)
  1. DICLOFENAC [Suspect]
     Active Substance: DICLOFENAC
     Indication: Osteoarthritis
     Dates: start: 202206, end: 202306
  2. ASPIRIN [Suspect]
     Active Substance: ASPIRIN
     Indication: Osteoarthritis
     Dates: start: 1999, end: 2019
  3. ASPIRIN [Suspect]
     Active Substance: ASPIRIN
     Dates: start: 2019, end: 202206

REACTIONS (2)
  - Gastrointestinal toxicity [Recovering/Resolving]
  - Intestinal diaphragm disease [Recovering/Resolving]
